FAERS Safety Report 5193536-X (Version None)
Quarter: 2006Q4

REPORT INFORMATION
  Report Type: 
  Country: None (occurrence: None)
  Receive Date: 20061228
  Receipt Date: 20060712
  Transmission Date: 20070319
  Serious: No
  Sender: FDA-Public Use
  Company Number: US-GLAXOSMITHKLINE-A0612006A

PATIENT
  Age: 79 Year
  Sex: Male

DRUGS (8)
  1. FLUTICASONE PROPIONATE [Suspect]
     Route: 045
     Dates: start: 20060701
  2. DIOVAN [Concomitant]
  3. LIPITOR [Concomitant]
  4. ASPIRIN [Concomitant]
  5. PRILOSEC [Concomitant]
  6. UROXATRAL [Concomitant]
  7. ISOSORBIDE [Concomitant]
  8. VITAMINS [Concomitant]

REACTIONS (1)
  - PALPITATIONS [None]
